FAERS Safety Report 9817785 (Version 1)
Quarter: 2014Q1

REPORT INFORMATION
  Report Type: Spontaneous
  Country: US (occurrence: None)
  Receive Date: 20140110
  Receipt Date: 20140110
  Transmission Date: 20141002
  Serious: Yes (Other)
  Sender: FDA-Public Use
  Company Number: None

PATIENT
  Age: 67 Year
  Sex: Female
  Weight: 132 kg

DRUGS (8)
  1. AMIODARONE [Suspect]
     Indication: ATRIAL FIBRILLATION
     Dosage: 1 PILL QD ORAL
     Route: 048
  2. ASCORBIC ACID [Concomitant]
  3. ASA [Concomitant]
  4. ATORVASTATIN [Concomitant]
  5. FLUTICASONE NASAL SPRAY [Concomitant]
  6. METOPROLOL [Concomitant]
  7. MVO [Concomitant]
  8. PANTOPRAZOLE [Concomitant]

REACTIONS (1)
  - Hypothyroidism [None]
